FAERS Safety Report 10146382 (Version 1)
Quarter: 2014Q2

REPORT INFORMATION
  Report Type: Spontaneous
  Country: GB (occurrence: None)
  Receive Date: 20140429
  Receipt Date: 20140429
  Transmission Date: 20141212
  Serious: Yes (Hospitalization, Disabling, Other)
  Sender: FDA-Public Use
  Company Number: 2014GB003204

PATIENT
  Age: 66 Year
  Sex: Male
  Weight: 82 kg

DRUGS (12)
  1. ICLUSIG [Suspect]
     Indication: ACUTE LYMPHOCYTIC LEUKAEMIA
     Route: 048
     Dates: start: 20140212, end: 20140218
  2. RASBURICASE [Suspect]
     Indication: PROPHYLAXIS
  3. ACICLOVIR (ACICLOVIR) [Concomitant]
  4. ASPIRIN (ASPIRIN) [Concomitant]
  5. ATORVASTATIN (ATORVASTATIN) [Concomitant]
  6. CLOPIDOGREL (CLOPIDOGREL) [Concomitant]
  7. CO-TRIMOXAZOLE (SULFAMETHOXAZOLE, TRIMETHOPRIM) [Concomitant]
  8. CYTARABINE (CYTARABINE) [Concomitant]
  9. FONDAPARINUX (FONDAPARINUX) (7.5 MILLIGRAM, INJECTION) [Concomitant]
  10. IDARUBICIN (IDARUBICIN) [Concomitant]
  11. MESALAZINE (MESALAZINE) [Concomitant]
  12. URSODEOXYCHOLIC ACID (URSODEOXYCHOLIC ACID) UNKNOWN) [Concomitant]

REACTIONS (7)
  - Renal failure acute [None]
  - Cerebrovascular accident [None]
  - Tumour lysis syndrome [None]
  - Confusional state [None]
  - Drug ineffective [None]
  - Blood creatinine increased [None]
  - Cognitive disorder [None]
